FAERS Safety Report 4918914-2 (Version None)
Quarter: 2006Q1

REPORT INFORMATION
  Report Type: 
  Country: None (occurrence: None)
  Receive Date: 20060222
  Receipt Date: 20050222
  Transmission Date: 20060701
  Serious: Yes (Hospitalization)
  Sender: FDA-Public Use
  Company Number: US-MERCK-0502USA03485

PATIENT
  Age: 27 Year
  Sex: Female

DRUGS (1)
  1. VIOXX [Suspect]
     Route: 048

REACTIONS (31)
  - ACUTE RESPIRATORY DISTRESS SYNDROME [None]
  - ADVERSE EVENT [None]
  - ANAEMIA [None]
  - ANTINEUTROPHIL CYTOPLASMIC ANTIBODY POSITIVE [None]
  - ASTHENIA [None]
  - CARDIO-RESPIRATORY ARREST [None]
  - CHEST PAIN [None]
  - CYTOMEGALOVIRUS CHORIORETINITIS [None]
  - DRY GANGRENE [None]
  - GANGRENE [None]
  - GRAND MAL CONVULSION [None]
  - HEADACHE [None]
  - HERPES ZOSTER [None]
  - HYPERTENSION [None]
  - HYPOAESTHESIA [None]
  - INSOMNIA [None]
  - INTERSTITIAL LUNG DISEASE [None]
  - LOBAR PNEUMONIA [None]
  - LUNG ABSCESS [None]
  - OEDEMA PERIPHERAL [None]
  - PAIN [None]
  - PLEURAL EFFUSION [None]
  - PYREXIA [None]
  - RAYNAUD'S PHENOMENON [None]
  - RELAPSING FEVER [None]
  - RENAL FAILURE [None]
  - RETINAL DETACHMENT [None]
  - SCLERODERMA [None]
  - ULCER [None]
  - VASCULITIS [None]
  - WOUND DEHISCENCE [None]
